FAERS Safety Report 17223591 (Version 3)
Quarter: 2020Q1

REPORT INFORMATION
  Report Type: Report from Study
  Country: CA (occurrence: CA)
  Receive Date: 20200102
  Receipt Date: 20200113
  Transmission Date: 20200409
  Serious: No
  Sender: FDA-Public Use
  Company Number: CA-BEH-2019110947

PATIENT
  Age: 61 Year
  Sex: Female

DRUGS (1)
  1. HIZENTRA [Suspect]
     Active Substance: HUMAN IMMUNOGLOBULIN G
     Indication: PRIMARY IMMUNODEFICIENCY SYNDROME
     Dosage: 12 GRAM, QOW
     Route: 058
     Dates: start: 20191218

REACTIONS (6)
  - Injection site oedema [Unknown]
  - Injection site erythema [Recovered/Resolved with Sequelae]
  - Injection site pain [Recovered/Resolved with Sequelae]
  - Device issue [Unknown]
  - Injection site discomfort [Not Recovered/Not Resolved]
  - Liquid product physical issue [Unknown]

NARRATIVE: CASE EVENT DATE: 20191218
